FAERS Safety Report 10049050 (Version 1)
Quarter: 2014Q1

REPORT INFORMATION
  Report Type: Spontaneous
  Country: DE (occurrence: DE)
  Receive Date: 20140331
  Receipt Date: 20140331
  Transmission Date: 20141002
  Serious: Yes (Hospitalization)
  Sender: FDA-Public Use
  Company Number: US-ASTRAZENECA-2014SE21145

PATIENT
  Age: 4 Month
  Sex: 0
  Weight: .45 kg

DRUGS (1)
  1. SYNAGIS [Suspect]
     Indication: PREMATURE BABY
     Dosage: 3X
     Route: 030
     Dates: end: 20140211

REACTIONS (3)
  - Infection [Unknown]
  - Oxygen saturation decreased [Unknown]
  - Respiratory syncytial virus infection [Unknown]
